FAERS Safety Report 4539806-7 (Version None)
Quarter: 2004Q4

REPORT INFORMATION
  Report Type: 
  Country: None (occurrence: None)
  Receive Date: 20041223
  Receipt Date: 20041209
  Transmission Date: 20050328
  Serious: Yes (Death)
  Sender: FDA-Public Use
  Company Number: S04-FRA-08247-01

PATIENT
  Age: 83 Year
  Sex: Male
  Weight: 62.7 kg

DRUGS (6)
  1. EBIXA (MEMANTINE) [Suspect]
     Indication: DEMENTIA
     Dosage: 20 MG QD PO
     Route: 048
     Dates: start: 20040310
  2. FORLAX(MACROGOL) [Concomitant]
  3. IMOVANE (ZOPICLONE) [Concomitant]
  4. EQUANIL [Concomitant]
  5. LEVODOPA/ BENSERAZIDE (LEVODOPA W/BENSERAZIDE/) [Concomitant]
  6. ATARAX [Concomitant]

REACTIONS (20)
  - ABNORMAL BEHAVIOUR [None]
  - AGGRESSION [None]
  - AGITATION [None]
  - BLOOD CREATINE PHOSPHOKINASE INCREASED [None]
  - COMPLETED SUICIDE [None]
  - CONSTIPATION [None]
  - DELIRIUM [None]
  - DIARRHOEA [None]
  - DRUG INTERACTION [None]
  - FEMUR FRACTURE [None]
  - GAIT DISTURBANCE [None]
  - HALLUCINATION [None]
  - HEAD INJURY [None]
  - KYPHOSIS [None]
  - OVERDOSE [None]
  - POLYTRAUMATISM [None]
  - PYREXIA [None]
  - RENAL FAILURE [None]
  - SUBILEUS [None]
  - URINARY INCONTINENCE [None]
